FAERS Safety Report 16432727 (Version 1)
Quarter: 2019Q2

REPORT INFORMATION
  Report Type: Spontaneous
  Country: GB (occurrence: GB)
  Receive Date: 20190614
  Receipt Date: 20190614
  Transmission Date: 20190711
  Serious: Yes (Other)
  Sender: FDA-Public Use
  Company Number: GB-MYLANLABS-2019M1054883

PATIENT
  Age: 37 Year
  Sex: Male
  Weight: 88.8 kg

DRUGS (1)
  1. ISOTRETINOIN. [Suspect]
     Active Substance: ISOTRETINOIN
     Indication: ACNE
     Dosage: 30 MILLIGRAM, QD
     Route: 048
     Dates: start: 20180924, end: 20181124

REACTIONS (1)
  - Male sexual dysfunction [Unknown]
